FAERS Safety Report 24235449 (Version 1)
Quarter: 2024Q3

REPORT INFORMATION
  Report Type: Spontaneous
  Country: IT (occurrence: IT)
  Receive Date: 20240821
  Receipt Date: 20240821
  Transmission Date: 20241017
  Serious: Yes (Death)
  Sender: ABBVIE
  Company Number: None

PATIENT
  Age: 37 Year
  Sex: Male

DRUGS (2)
  1. GLECAPREVIR\PIBRENTASVIR [Suspect]
     Active Substance: GLECAPREVIR\PIBRENTASVIR
     Indication: Hepatitis C
     Dosage: 3 TABLETS A DAY
     Route: 048
     Dates: start: 20240725
  2. Metadone cloridrato gl [Concomitant]
     Indication: Drug use disorder
     Dosage: 70 MG A DAY
     Dates: start: 20240725

REACTIONS (1)
  - Terminal state [Fatal]
